FAERS Safety Report 25070539 (Version 3)
Quarter: 2025Q3

REPORT INFORMATION
  Report Type: Spontaneous
  Country: US (occurrence: US)
  Receive Date: 20250312
  Receipt Date: 20250807
  Transmission Date: 20251020
  Serious: No
  Sender: SANOFI AVENTIS
  Company Number: US-SA-2025SA071947

PATIENT
  Sex: Female
  Weight: 70.3 kg

DRUGS (7)
  1. DUPIXENT [Suspect]
     Active Substance: DUPILUMAB
     Indication: Dermatitis atopic
     Dosage: 300 MG, QOW
     Route: 058
  2. VITAMINS NOS [Concomitant]
     Active Substance: VITAMINS
  3. PIMECROLIMUS [Concomitant]
     Active Substance: PIMECROLIMUS
  4. ZOLOFT [Concomitant]
     Active Substance: SERTRALINE HYDROCHLORIDE
  5. METOPROLOL SUCCINATE [Concomitant]
     Active Substance: METOPROLOL SUCCINATE
  6. OMEGA-3 FATTY ACIDS [Concomitant]
     Active Substance: OMEGA-3 FATTY ACIDS
  7. RITALIN [Concomitant]
     Active Substance: METHYLPHENIDATE HYDROCHLORIDE

REACTIONS (7)
  - Injection site discomfort [Unknown]
  - Blister [Unknown]
  - Peripheral swelling [Unknown]
  - Skin burning sensation [Unknown]
  - Eye swelling [Unknown]
  - Lip haemorrhage [Unknown]
  - Dermatitis atopic [Unknown]
